FAERS Safety Report 7802343-8 (Version None)
Quarter: 2011Q4

REPORT INFORMATION
  Report Type: 
  Country: None (occurrence: None)
  Receive Date: 20111007
  Receipt Date: 20110930
  Transmission Date: 20120403
  Serious: Yes (Other)
  Sender: FDA-Public Use
  Company Number: IT-SHIRE-SPV1-2011-01178

PATIENT
  Age: 80 Year
  Sex: Female

DRUGS (1)
  1. MESALAMINE [Suspect]
     Indication: DIVERTICULITIS
     Dosage: 1200 MG, 1X/DAY:QD
     Route: 048
     Dates: start: 20110812, end: 20110812

REACTIONS (2)
  - CEREBRAL ISCHAEMIA [None]
  - OFF LABEL USE [None]
